FAERS Safety Report 6140219-5 (Version None)
Quarter: 2009Q2

REPORT INFORMATION
  Report Type: 
  Country: None (occurrence: None)
  Receive Date: 20090401
  Receipt Date: 20090327
  Transmission Date: 20091009
  Serious: No
  Sender: FDA-Public Use
  Company Number: US-B.I. PHARMACEUTICALS,INC./RIDGEFIELD-2009-BP-03798BP

PATIENT
  Age: 87 Year
  Sex: Male

DRUGS (2)
  1. MIRAPEX [Suspect]
     Indication: RESTLESS LEGS SYNDROME
     Dosage: .125MG
     Route: 048
     Dates: start: 20090317, end: 20090324
  2. MIRAPEX [Suspect]
     Dosage: .25MG
     Route: 048
     Dates: start: 20090325

REACTIONS (1)
  - DRUG INEFFECTIVE [None]
